FAERS Safety Report 4773905-X (Version None)
Quarter: 2005Q3

REPORT INFORMATION
  Report Type: 
  Country: None (occurrence: None)
  Receive Date: 20050920
  Receipt Date: 20050909
  Transmission Date: 20060218
  Serious: Yes (Hospitalization)
  Sender: FDA-Public Use
  Company Number: EE-JNJFOC-20050500043

PATIENT
  Sex: Male
  Weight: 120 kg

DRUGS (3)
  1. RISPERIDONE CONSTA [Suspect]
     Indication: SCHIZOAFFECTIVE DISORDER
     Dosage: NO J + J DRUG GIVEN
     Route: 030
  2. SEROQUEL [Suspect]
     Indication: SCHIZOAFFECTIVE DISORDER
     Route: 048
     Dates: start: 20050303
  3. REMERON [Concomitant]
     Indication: DEPRESSED MOOD
     Route: 048

REACTIONS (1)
  - DEPRESSION [None]
